FAERS Safety Report 5069918-3 (Version None)
Quarter: 2006Q3

REPORT INFORMATION
  Report Type: 
  Country: None (occurrence: None)
  Receive Date: 20060731
  Receipt Date: 20060721
  Transmission Date: 20061208
  Serious: Yes (Disabling, Congenital Anomaly)
  Sender: FDA-Public Use
  Company Number: 2006074422

PATIENT
  Age: 19 Month
  Sex: Female
  Weight: 9.98 kg

DRUGS (4)
  1. GENOTROPIN [Suspect]
     Indication: BODY HEIGHT BELOW NORMAL
     Dosage: 6 DAYS/WEEK (DAILY), SUBCUTANEOUS
     Route: 058
  2. PROPULSID [Suspect]
     Indication: GASTROOESOPHAGEAL REFLUX DISEASE
     Dosage: 2 ML (1 ML, FREQUENCY: BID)
  3. OMEPRAZOLE [Concomitant]
  4. SODIUM BICARBONATE [Concomitant]

REACTIONS (4)
  - CARDIAC HYPERTROPHY [None]
  - CARDIOMYOPATHY [None]
  - HIRSUTISM [None]
  - WEIGHT INCREASED [None]
